FAERS Safety Report 9528096 (Version 3)
Quarter: 2013Q4

REPORT INFORMATION
  Report Type: Spontaneous
  Country: JP (occurrence: JP)
  Receive Date: 20130917
  Receipt Date: 20131017
  Transmission Date: 20140711
  Serious: Yes (Death, Disabling)
  Sender: FDA-Public Use
  Company Number: JP-JNJFOC-20130908173

PATIENT
  Age: 84 Year
  Sex: Female
  Weight: 45 kg

DRUGS (4)
  1. XARELTO [Suspect]
     Indication: CEREBROVASCULAR ACCIDENT PROPHYLAXIS
     Route: 048
     Dates: start: 20130724, end: 20130929
  2. FEBUXOSTAT [Concomitant]
     Indication: HYPERURICAEMIA
     Route: 050
     Dates: start: 20130502, end: 20130929
  3. LANSOPRAZOLE [Concomitant]
     Indication: GASTROOESOPHAGEAL REFLUX DISEASE
     Route: 050
     Dates: start: 20130515, end: 20130929
  4. LASIX [Concomitant]
     Indication: CARDIAC FAILURE
     Route: 050
     Dates: start: 20130502, end: 20130929

REACTIONS (2)
  - Renal failure acute [Fatal]
  - Cerebral infarction [Not Recovered/Not Resolved]
